FAERS Safety Report 8467429-6 (Version None)
Quarter: 2012Q2

REPORT INFORMATION
  Report Type: 
  Country: None (occurrence: None)
  Receive Date: 20120620
  Receipt Date: 20120606
  Transmission Date: 20120825
  Serious: Yes (Hospitalization, Disabling, Other)
  Sender: FDA-Public Use
  Company Number: 2012AP001768

PATIENT
  Age: 13 Year
  Sex: Male

DRUGS (6)
  1. LAMOTRIGINE [Suspect]
     Indication: BIPOLAR DISORDER
     Dosage: 12.5 MG;QD; 25 MG;QD; 50 MG;QD;
  2. METHYLPHENIDATE HCL [Concomitant]
  3. LAMOTRIGINE [Suspect]
     Indication: BIPOLAR DISORDER
  4. RISPERIDONE [Concomitant]
  5. LAMOTRIGINE [Suspect]
     Indication: BIPOLAR DISORDER
  6. CONCERTA [Suspect]
     Indication: BIPOLAR DISORDER

REACTIONS (40)
  - TOXIC EPIDERMAL NECROLYSIS [None]
  - WOUND HAEMORRHAGE [None]
  - SHOCK HAEMORRHAGIC [None]
  - RESPIRATORY ARREST [None]
  - PYREXIA [None]
  - RASH [None]
  - CARDIAC PROCEDURE COMPLICATION [None]
  - EXCORIATION [None]
  - ORAL DISORDER [None]
  - IATROGENIC INJURY [None]
  - DISABILITY [None]
  - DEPRESSION [None]
  - PAIN [None]
  - MENTAL DISORDER [None]
  - SCAR [None]
  - PSYCHOGENIC PAIN DISORDER [None]
  - SKIN DEPIGMENTATION [None]
  - EYE EXCISION [None]
  - PANIC ATTACK [None]
  - EYE PENETRATION [None]
  - OFF LABEL USE [None]
  - PHARYNGITIS [None]
  - THROMBOSIS [None]
  - CARDIAC TAMPONADE [None]
  - CONDITION AGGRAVATED [None]
  - OCULAR HYPERAEMIA [None]
  - STEVENS-JOHNSON SYNDROME [None]
  - EYE INFECTION [None]
  - BLINDNESS [None]
  - PSYCHOMOTOR HYPERACTIVITY [None]
  - IMPULSIVE BEHAVIOUR [None]
  - PERICARDIAL EFFUSION [None]
  - POST-TRAUMATIC STRESS DISORDER [None]
  - CORNEAL SCAR [None]
  - QUALITY OF LIFE DECREASED [None]
  - CARDIAC ARREST [None]
  - TRACHEAL STENOSIS [None]
  - ATRIAL FIBRILLATION [None]
  - ANHEDONIA [None]
  - PNEUMOTHORAX [None]
